FAERS Safety Report 23869049 (Version 2)
Quarter: 2024Q2

REPORT INFORMATION
  Report Type: Spontaneous
  Country: US (occurrence: US)
  Receive Date: 20240517
  Receipt Date: 20240603
  Transmission Date: 20240716
  Serious: Yes (Other)
  Sender: FDA-Public Use
  Company Number: US-Stemline Therapeutics, Inc.-2024ST001297

PATIENT
  Age: 74 Year
  Sex: Male

DRUGS (1)
  1. ORSERDU [Suspect]
     Active Substance: ELACESTRANT
     Indication: Product used for unknown indication
     Route: 048
     Dates: start: 202402

REACTIONS (10)
  - Haemoglobin decreased [Unknown]
  - Muscle strain [Recovering/Resolving]
  - Weight decreased [Unknown]
  - Irritability [Unknown]
  - Gait disturbance [Unknown]
  - Myalgia [Unknown]
  - Musculoskeletal pain [Unknown]
  - Decreased appetite [Unknown]
  - Fatigue [Unknown]
  - Back pain [Unknown]

NARRATIVE: CASE EVENT DATE: 20240501
